FAERS Safety Report 9752652 (Version 2)
Quarter: 2014Q1

REPORT INFORMATION
  Report Type: Spontaneous
  Country: JP (occurrence: JP)
  Receive Date: 20131213
  Receipt Date: 20140228
  Transmission Date: 20141002
  Serious: Yes (Hospitalization, Other)
  Sender: FDA-Public Use
  Company Number: JP-SA-2013SA127297

PATIENT
  Age: 47 Year
  Sex: Female
  Weight: 51.9 kg

DRUGS (5)
  1. TAXOTERE [Suspect]
     Indication: OVARIAN CANCER
     Route: 041
     Dates: start: 20131112, end: 20131112
  2. ALOXI [Concomitant]
  3. DEXART [Concomitant]
  4. THYRADIN-S [Concomitant]
  5. CARBOPLATIN [Concomitant]
     Indication: OVARIAN CANCER
     Dates: start: 20131112

REACTIONS (4)
  - Palpitations [Recovered/Resolved]
  - Hyperhidrosis [Recovered/Resolved]
  - Ocular hyperaemia [Recovered/Resolved]
  - Blood pressure decreased [Recovered/Resolved]
